FAERS Safety Report 6335474-2 (Version None)
Quarter: 2009Q3

REPORT INFORMATION
  Report Type: 
  Country: None (occurrence: None)
  Receive Date: 20090831
  Receipt Date: 20090821
  Transmission Date: 20100115
  Serious: Yes (Hospitalization, Other)
  Sender: FDA-Public Use
  Company Number: US-ASTRAZENECA-2009SE09226

PATIENT
  Sex: Male
  Weight: 93.4 kg

DRUGS (8)
  1. ACCOLATE [Suspect]
     Route: 048
  2. THEOPHYLLINE [Concomitant]
  3. PREDNISONE [Concomitant]
  4. ADVAIR HFA [Concomitant]
  5. SPIRIVA [Concomitant]
  6. NORVASC [Concomitant]
  7. PRILOSEC OTC [Concomitant]
  8. FLONASE [Concomitant]

REACTIONS (5)
  - ASTHMA [None]
  - LYMPHADENOPATHY [None]
  - PAIN [None]
  - PAPILLOMA [None]
  - PNEUMONIA [None]
